FAERS Safety Report 21603339 (Version 1)
Quarter: 2022Q4

REPORT INFORMATION
  Report Type: Spontaneous
  Country: US (occurrence: None)
  Receive Date: 20221115
  Receipt Date: 20221115
  Transmission Date: 20230113
  Serious: No
  Sender: FDA-Public Use
  Company Number: None

PATIENT
  Age: 42 Year
  Sex: Male

DRUGS (1)
  1. SOFOSBUVIR AND VELPATASVIR [Suspect]
     Active Substance: SOFOSBUVIR\VELPATASVIR
     Dosage: FREQUENCY : DAILY;?
     Route: 048
     Dates: start: 20221006

REACTIONS (6)
  - Impaired work ability [None]
  - Headache [None]
  - Abdominal pain [None]
  - Diabetes mellitus [None]
  - Blindness [None]
  - Eye haemorrhage [None]

NARRATIVE: CASE EVENT DATE: 20221006
